FAERS Safety Report 7731719-2 (Version None)
Quarter: 2011Q3

REPORT INFORMATION
  Report Type: 
  Country: None (occurrence: None)
  Receive Date: 20110906
  Receipt Date: 20110830
  Transmission Date: 20111222
  Serious: Yes (Other)
  Sender: FDA-Public Use
  Company Number: PHHY2011DE42424

PATIENT
  Sex: Male

DRUGS (1)
  1. EXTAVIA [Suspect]
     Indication: MULTIPLE SCLEROSIS
     Dosage: 250 UG, QOD
     Route: 058
     Dates: start: 20110428

REACTIONS (12)
  - INJECTION SITE ERYTHEMA [None]
  - BLOOD COUNT ABNORMAL [None]
  - VISUAL IMPAIRMENT [None]
  - LIVER FUNCTION TEST ABNORMAL [None]
  - DIZZINESS [None]
  - ABDOMINAL PAIN UPPER [None]
  - INJECTION SITE HAEMATOMA [None]
  - MULTIPLE SCLEROSIS RELAPSE [None]
  - INJECTION SITE PAIN [None]
  - ALANINE AMINOTRANSFERASE INCREASED [None]
  - GASTRITIS [None]
  - SERUM FERRITIN INCREASED [None]
